FAERS Safety Report 16333016 (Version 1)
Quarter: 2019Q2

REPORT INFORMATION
  Report Type: Spontaneous
  Country: US (occurrence: US)
  Receive Date: 20190413
  Receipt Date: 20190413
  Transmission Date: 20190711
  Serious: Yes (Hospitalization)
  Sender: FDA-Public Use
  Company Number: None

PATIENT
  Age: 62 Year
  Sex: Male
  Weight: 94.35 kg

DRUGS (1)
  1. LENALIDOMIDE (CC-5013) [Suspect]
     Active Substance: LENALIDOMIDE
     Dates: end: 20190329

REACTIONS (10)
  - Diarrhoea haemorrhagic [None]
  - Colitis [None]
  - Chills [None]
  - Abdominal pain [None]
  - Blood iron decreased [None]
  - Syncope [None]
  - Fall [None]
  - Asthenia [None]
  - Blood potassium decreased [None]
  - Vomiting [None]

NARRATIVE: CASE EVENT DATE: 20190330
